FAERS Safety Report 7258380-8 (Version None)
Quarter: 2011Q1

REPORT INFORMATION
  Report Type: 
  Country: None (occurrence: None)
  Receive Date: 20110129
  Receipt Date: 20100709
  Transmission Date: 20110831
  Serious: No
  Sender: FDA-Public Use
  Company Number: US-ABBOTT-10P-163-0656305-00

PATIENT
  Sex: Female

DRUGS (1)
  1. HUMIRA [Suspect]
     Indication: PRODUCT USED FOR UNKNOWN INDICATION
     Route: 058
     Dates: start: 20100622

REACTIONS (6)
  - FUNGAL INFECTION [None]
  - WOUND INFECTION [None]
  - COUGH [None]
  - SINUS CONGESTION [None]
  - ARTHROPOD BITE [None]
  - HEADACHE [None]
